FAERS Safety Report 11279129 (Version 1)
Quarter: 2015Q3

REPORT INFORMATION
  Report Type: Spontaneous
  Country: US (occurrence: US)
  Receive Date: 20150717
  Receipt Date: 20150717
  Transmission Date: 20151125
  Serious: No
  Sender: FDA-Public Use
  Company Number: US-MYLANLABS-2015M1017589

PATIENT
  Age: 52 Year
  Sex: Female
  Weight: 63.49 kg

DRUGS (1)
  1. ESTRADIOL TRANSDERMAL SYSTEM [Suspect]
     Active Substance: ESTRADIOL
     Indication: BLOOD OESTROGEN DECREASED
     Dosage: 0.1 MG, QD, CHG BIW
     Route: 062
     Dates: start: 201501

REACTIONS (2)
  - Drug withdrawal headache [Recovered/Resolved with Sequelae]
  - Incorrect drug administration rate [Recovered/Resolved with Sequelae]

NARRATIVE: CASE EVENT DATE: 201501
